FAERS Safety Report 12505582 (Version 1)
Quarter: 2016Q2

REPORT INFORMATION
  Report Type: Report from Study
  Country: FR (occurrence: JP)
  Receive Date: 20160628
  Receipt Date: 20160628
  Transmission Date: 20160815
  Serious: Yes (Hospitalization, Other)
  Sender: FDA-Public Use
  Company Number: JP-FRI-1000085604

PATIENT
  Age: 63 Year
  Sex: Male

DRUGS (4)
  1. BIOFERMIN [Concomitant]
     Active Substance: BACILLUS SUBTILIS\LACTOBACILLUS ACIDOPHILUS\STREPTOCOCCUS FAECAIS
     Dates: start: 20141205, end: 20160318
  2. SELENICA-R [Concomitant]
     Active Substance: VALPROATE SODIUM
     Dates: start: 20140521, end: 20160318
  3. ACAMPROSATE [Suspect]
     Active Substance: ACAMPROSATE
     Indication: ALCOHOLISM
     Route: 048
     Dates: start: 20140514, end: 20160318
  4. CYANAMIDE [Concomitant]
     Active Substance: CYANAMIDE
     Dates: start: 20140514, end: 20140628

REACTIONS (2)
  - Diarrhoea [Recovered/Resolved]
  - Brain neoplasm [Unknown]

NARRATIVE: CASE EVENT DATE: 201411
